FAERS Safety Report 11394646 (Version 1)
Quarter: 2015Q3

REPORT INFORMATION
  Report Type: Spontaneous
  Country: None (occurrence: None)
  Receive Date: 20150817
  Receipt Date: 20150817
  Transmission Date: 20151125
  Serious: Yes (Hospitalization)
  Sender: FDA-Public Use
  Company Number: None

PATIENT
  Age: 30 Year
  Sex: Female
  Weight: 81.19 kg

DRUGS (2)
  1. PARAGARD T 380A [Suspect]
     Active Substance: COPPER
  2. PRE-NATAL VITAMINS [Concomitant]

REACTIONS (6)
  - Dizziness [None]
  - Hyperadrenocorticism [None]
  - Haemorrhage [None]
  - Headache [None]
  - Drug ineffective [None]
  - Hot flush [None]

NARRATIVE: CASE EVENT DATE: 20150814
